FAERS Safety Report 5766910-8 (Version None)
Quarter: 2008Q2

REPORT INFORMATION
  Report Type: 
  Country: None (occurrence: None)
  Receive Date: 20080612
  Receipt Date: 20080526
  Transmission Date: 20081010
  Serious: No
  Sender: FDA-Public Use
  Company Number: US-BAYER-200823191NA

PATIENT
  Age: 50 Year
  Sex: Male

DRUGS (1)
  1. LEVITRA [Suspect]
     Indication: HERNIA REPAIR
     Dosage: UNIT DOSE: 10 MG
     Route: 048

REACTIONS (3)
  - ADVERSE EVENT [None]
  - DYSGEUSIA [None]
  - NASAL CONGESTION [None]
